FAERS Safety Report 23574892 (Version 2)
Quarter: 2024Q1

REPORT INFORMATION
  Report Type: Report from Study
  Country: US (occurrence: US)
  Receive Date: 20240228
  Receipt Date: 20240329
  Transmission Date: 20240409
  Serious: No
  Sender: FDA-Public Use
  Company Number: US-GSKCCFUS-Case-01946586_AE-108150

PATIENT
  Sex: Male
  Weight: 131 kg

DRUGS (2)
  1. MOMELOTINIB [Suspect]
     Active Substance: MOMELOTINIB
     Indication: Myelofibrosis
     Dosage: 200 MG, QD
     Route: 048
  2. MOMELOTINIB [Suspect]
     Active Substance: MOMELOTINIB
     Dosage: 200 MG, QD
     Route: 048

REACTIONS (6)
  - Pollakiuria [Not Recovered/Not Resolved]
  - Diarrhoea [Not Recovered/Not Resolved]
  - Insomnia [Not Recovered/Not Resolved]
  - Anaemia [Recovering/Resolving]
  - Haemoglobin decreased [Not Recovered/Not Resolved]
  - Drug ineffective [Unknown]
